FAERS Safety Report 15943211 (Version 4)
Quarter: 2019Q4

REPORT INFORMATION
  Report Type: Spontaneous
  Country: US (occurrence: US)
  Receive Date: 20190210
  Receipt Date: 20191224
  Transmission Date: 20200122
  Serious: Yes (Hospitalization, Other)
  Sender: FDA-Public Use
  Company Number: US-ASTRAZENECA-2018SF33768

PATIENT
  Age: 61 Year
  Sex: Female
  Weight: 66.7 kg

DRUGS (41)
  1. ASPIRIN. [Concomitant]
     Active Substance: ASPIRIN
     Route: 048
  2. HYDROCHLOROTHIAZIDE. [Concomitant]
     Active Substance: HYDROCHLOROTHIAZIDE
     Route: 048
  3. LABETALOL [Concomitant]
     Active Substance: LABETALOL\LABETALOL HYDROCHLORIDE
     Route: 048
  4. PRAVASTATIN. [Concomitant]
     Active Substance: PRAVASTATIN
     Dosage: 40.0MG CONTINUOUSLY
     Route: 048
  5. HYDROXYZINE [Concomitant]
     Active Substance: HYDROXYZINE HYDROCHLORIDE
     Route: 048
  6. PRILOSEC [Suspect]
     Active Substance: OMEPRAZOLE MAGNESIUM
     Indication: GASTROOESOPHAGEAL REFLUX DISEASE
     Dosage: GENERIC
     Route: 065
     Dates: start: 20080627, end: 20100621
  7. AMLODIPINE [Concomitant]
     Active Substance: AMLODIPINE BESYLATE
     Indication: RENAL IMPAIRMENT
     Route: 048
  8. ISOSORBIDE DINITRATE. [Concomitant]
     Active Substance: ISOSORBIDE DINITRATE
     Route: 048
  9. ACETAMINOPHEN. [Concomitant]
     Active Substance: ACETAMINOPHEN
     Route: 048
  10. CHOLECALCIFEROL [Concomitant]
     Active Substance: CHOLECALCIFEROL
     Route: 048
  11. ONDANSETRON [Concomitant]
     Active Substance: ONDANSETRON
     Route: 048
  12. CLONAZEPAM. [Concomitant]
     Active Substance: CLONAZEPAM
     Route: 048
  13. TRAMADOL. [Concomitant]
     Active Substance: TRAMADOL
     Route: 048
  14. NEXIUM 24HR [Suspect]
     Active Substance: ESOMEPRAZOLE MAGNESIUM
     Indication: GASTROOESOPHAGEAL REFLUX DISEASE
     Route: 048
     Dates: start: 2008
  15. TRAMADOL. [Concomitant]
     Active Substance: TRAMADOL
     Route: 048
  16. MORPHINE [Concomitant]
     Active Substance: MORPHINE
     Dosage: 5.0MG CONTINUOUSLY
     Route: 048
  17. ATORVASTATIN [Concomitant]
     Active Substance: ATORVASTATIN
     Dosage: 5.0MG CONTINUOUSLY
     Route: 048
  18. NEXIUM [Suspect]
     Active Substance: ESOMEPRAZOLE MAGNESIUM
     Indication: GASTROOESOPHAGEAL REFLUX DISEASE
     Route: 048
     Dates: start: 20080101, end: 20151231
  19. PRILOSEC [Suspect]
     Active Substance: OMEPRAZOLE MAGNESIUM
     Indication: GASTROOESOPHAGEAL REFLUX DISEASE
     Route: 048
     Dates: start: 200801, end: 201512
  20. PRILOSEC OTC [Suspect]
     Active Substance: OMEPRAZOLE MAGNESIUM
     Indication: GASTROOESOPHAGEAL REFLUX DISEASE
     Route: 048
     Dates: start: 2008
  21. AMLODIPINE [Concomitant]
     Active Substance: AMLODIPINE BESYLATE
     Indication: RENAL IMPAIRMENT
     Route: 065
     Dates: start: 201911
  22. LOSARTAN. [Concomitant]
     Active Substance: LOSARTAN
     Route: 048
  23. RANITIDINE. [Concomitant]
     Active Substance: RANITIDINE
     Route: 048
  24. OXYCODONE [Concomitant]
     Active Substance: OXYCODONE
     Route: 048
  25. SERTRALINE [Concomitant]
     Active Substance: SERTRALINE HYDROCHLORIDE
     Route: 048
  26. FENTANYL. [Concomitant]
     Active Substance: FENTANYL
     Route: 048
  27. NEXIUM [Suspect]
     Active Substance: ESOMEPRAZOLE MAGNESIUM
     Indication: GASTROOESOPHAGEAL REFLUX DISEASE
     Route: 048
     Dates: start: 200801, end: 201512
  28. PROPRANOLOL [Concomitant]
     Active Substance: PROPRANOLOL HYDROCHLORIDE
     Indication: DEPRESSION
  29. ALBUTEROL. [Concomitant]
     Active Substance: ALBUTEROL
  30. IBUPROFEN. [Concomitant]
     Active Substance: IBUPROFEN
     Route: 048
  31. CIPROFLOXACIN. [Concomitant]
     Active Substance: CIPROFLOXACIN
     Dosage: 5.0MG CONTINUOUSLY
     Route: 048
  32. CARVEDILOL. [Concomitant]
     Active Substance: CARVEDILOL
     Indication: BLOOD CHOLESTEROL INCREASED
     Route: 065
     Dates: start: 201911
  33. MEPERIDINE [Concomitant]
     Active Substance: MEPERIDINE
     Route: 048
  34. SUCRALFATE. [Concomitant]
     Active Substance: SUCRALFATE
     Route: 048
  35. DIAZEPAM. [Concomitant]
     Active Substance: DIAZEPAM
     Dosage: 5.0MG CONTINUOUSLY
     Route: 048
  36. ROSUVASTATIN. [Concomitant]
     Active Substance: ROSUVASTATIN
     Indication: BLOOD CHOLESTEROL INCREASED
     Route: 065
     Dates: start: 201911
  37. PRENATAL VITAMINS [Concomitant]
     Active Substance: VITAMINS
     Indication: RENAL IMPAIRMENT
     Route: 065
     Dates: start: 2010
  38. CITALOPRAM [Concomitant]
     Active Substance: CITALOPRAM HYDROBROMIDE
     Route: 048
  39. VITAMIN D [Concomitant]
     Active Substance: VITAMIN D NOS
     Indication: CARDIOVASCULAR DISORDER
     Route: 065
     Dates: start: 2011
  40. ZINC SULFATE. [Concomitant]
     Active Substance: ZINC SULFATE
     Route: 048
  41. PRAVACHOL [Concomitant]
     Active Substance: PRAVASTATIN SODIUM
     Route: 048

REACTIONS (3)
  - Renal injury [Unknown]
  - Acute kidney injury [Not Recovered/Not Resolved]
  - Chronic kidney disease [Not Recovered/Not Resolved]

NARRATIVE: CASE EVENT DATE: 2010
